FAERS Safety Report 13133195 (Version 2)
Quarter: 2017Q1

REPORT INFORMATION
  Report Type: Report from Study
  Country: GR (occurrence: GR)
  Receive Date: 20170120
  Receipt Date: 20170213
  Transmission Date: 20170428
  Serious: Yes (Hospitalization, Other)
  Sender: FDA-Public Use
  Company Number: PHHY2017GR005805

PATIENT
  Sex: Male
  Weight: 73 kg

DRUGS (4)
  1. EXELON PATCH [Suspect]
     Active Substance: RIVASTIGMINE
     Indication: DEMENTIA ALZHEIMER^S TYPE
     Dosage: 4.6 MG, QD, PATCH (5 CM2)
     Route: 062
     Dates: start: 20141121, end: 20150215
  2. EXELON PATCH [Suspect]
     Active Substance: RIVASTIGMINE
     Dosage: 13.3 MG, QD, PATCH (15 CM2)
     Route: 062
     Dates: start: 20150923
  3. LAPOZAN [Concomitant]
     Active Substance: OLANZAPINE
     Indication: DELIRIUM
     Dosage: 1 DF, QD
     Route: 048
     Dates: start: 20141029
  4. EXELON PATCH [Suspect]
     Active Substance: RIVASTIGMINE
     Dosage: 9.5 MG, QD, PATCH (10 CM2)
     Route: 062
     Dates: start: 20150216, end: 20150922

REACTIONS (2)
  - Cholecystitis acute [Recovered/Resolved]
  - Cholelithiasis [Recovered/Resolved]

NARRATIVE: CASE EVENT DATE: 20161231
